FAERS Safety Report 13467440 (Version 2)
Quarter: 2017Q2

REPORT INFORMATION
  Report Type: Report from Study
  Country: AU (occurrence: AU)
  Receive Date: 20170421
  Receipt Date: 20170629
  Transmission Date: 20170830
  Serious: Yes (Other)
  Sender: FDA-Public Use
  Company Number: PHHO2014AU019083

PATIENT
  Age: 61 Year
  Sex: Male
  Weight: 91 kg

DRUGS (5)
  1. TRAMETINIB [Suspect]
     Active Substance: TRAMETINIB
     Indication: MALIGNANT MELANOMA
     Dosage: 2 MG, QD
     Route: 048
     Dates: start: 20140827, end: 20140923
  2. TRAMETINIB [Suspect]
     Active Substance: TRAMETINIB
     Dosage: 1.5 MG, UNK
     Route: 048
     Dates: start: 20141014, end: 20141014
  3. TRAMETINIB [Suspect]
     Active Substance: TRAMETINIB
     Dosage: 1.5 UNK, UNK
     Route: 048
     Dates: start: 20141021, end: 20141110
  4. TRAMETINIB [Suspect]
     Active Substance: TRAMETINIB
     Dosage: 1.5 MG, UNK
     Route: 048
     Dates: start: 20141117, end: 20141117
  5. DABRAFENIB [Suspect]
     Active Substance: DABRAFENIB
     Indication: MALIGNANT MELANOMA
     Dosage: 150 MG, BID
     Route: 048
     Dates: start: 20140827

REACTIONS (1)
  - Chorioretinopathy [Recovered/Resolved]

NARRATIVE: CASE EVENT DATE: 20140917
